FAERS Safety Report 20824699 (Version 1)
Quarter: 2022Q2

REPORT INFORMATION
  Report Type: Spontaneous
  Country: US (occurrence: US)
  Receive Date: 20220513
  Receipt Date: 20220513
  Transmission Date: 20220721
  Serious: Yes (Other)
  Sender: FDA-Public Use
  Company Number: US-LUPIN PHARMACEUTICALS INC.-2022-06910

PATIENT
  Age: 2 Day
  Sex: Male

DRUGS (4)
  1. LEVETIRACETAM [Suspect]
     Active Substance: LEVETIRACETAM
     Indication: Benign familial neonatal convulsions
     Dosage: 20 MILLIGRAM/KILOGRAM (LOADING DOSE)
     Route: 065
  2. LEVETIRACETAM [Suspect]
     Active Substance: LEVETIRACETAM
     Dosage: 19 MILLIGRAM/KILOGRAM, QD
     Route: 048
  3. FOSPHENYTOIN [Concomitant]
     Active Substance: FOSPHENYTOIN
     Indication: Benign familial neonatal convulsions
     Dosage: 20 MILLIGRAM/KILOGRAM (LOADING DOSE)
     Route: 065
  4. FOSPHENYTOIN [Concomitant]
     Active Substance: FOSPHENYTOIN
     Dosage: UNK (TWO MAINTENANCE DOSES)
     Route: 065

REACTIONS (3)
  - Drug ineffective for unapproved indication [Unknown]
  - Off label use [Unknown]
  - Intentional product use issue [Unknown]
